FAERS Safety Report 19922863 (Version 1)
Quarter: 2021Q4

REPORT INFORMATION
  Report Type: Report from Study
  Country: FR (occurrence: FR)
  Receive Date: 20211005
  Receipt Date: 20211005
  Transmission Date: 20220303
  Serious: Yes (Hospitalization)
  Sender: FDA-Public Use
  Company Number: FR-PFIZER INC-202101292140

PATIENT
  Age: 69 Year
  Sex: Female
  Weight: 68 kg

DRUGS (36)
  1. CYTARABINE [Suspect]
     Active Substance: CYTARABINE
     Indication: Acute lymphocytic leukaemia
     Dosage: 40 MG DAY 2 INDUCTION I
     Dates: start: 20210706, end: 20210706
  2. CYTARABINE [Suspect]
     Active Substance: CYTARABINE
     Dosage: 40 MG DAY 2 INDUCTION II
     Dates: start: 20210820
  3. CYTARABINE [Suspect]
     Active Substance: CYTARABINE
     Dosage: 1.5 MG/M2/12H DAY 1 AND DAY 2 CONSOLIDATION
     Dates: start: 20210913
  4. INOTUZUMAB OZOGAMICIN [Suspect]
     Active Substance: INOTUZUMAB OZOGAMICIN
     Indication: Acute lymphocytic leukaemia
     Dosage: 1.38 MG DAY 1 INDUCTION I
     Dates: start: 20210705, end: 20210705
  5. INOTUZUMAB OZOGAMICIN [Suspect]
     Active Substance: INOTUZUMAB OZOGAMICIN
     Dosage: 1.38 MG DAY 8 INDUCTION I
     Dates: start: 20210712, end: 20210712
  6. INOTUZUMAB OZOGAMICIN [Suspect]
     Active Substance: INOTUZUMAB OZOGAMICIN
     Dosage: 1.38 MG DAY 15 INDUCTION I
     Dates: start: 20210719, end: 20210719
  7. INOTUZUMAB OZOGAMICIN [Suspect]
     Active Substance: INOTUZUMAB OZOGAMICIN
     Dosage: 0.82 DAY 1 INDUCTION II
     Dates: start: 20210819, end: 20210826
  8. INOTUZUMAB OZOGAMICIN [Suspect]
     Active Substance: INOTUZUMAB OZOGAMICIN
     Dosage: 0.82 DAY 8 INDUCTION II
     Dates: start: 20210826
  9. VINCRISTINE SULFATE [Suspect]
     Active Substance: VINCRISTINE SULFATE
     Indication: Acute lymphocytic leukaemia
     Dosage: 2 MG DAY 1 INDUCTION I
     Dates: start: 20210705, end: 20210705
  10. VINCRISTINE SULFATE [Suspect]
     Active Substance: VINCRISTINE SULFATE
     Dosage: 2 MG DAY 8 INDUCTION I
     Dates: start: 20210712, end: 20210712
  11. VINCRISTINE SULFATE [Suspect]
     Active Substance: VINCRISTINE SULFATE
     Dosage: 2 MG DAY 15 INDUCTION I
     Dates: start: 20210719, end: 20210719
  12. VINCRISTINE SULFATE [Suspect]
     Active Substance: VINCRISTINE SULFATE
     Dosage: 2 MG DAY 22 INDUCTION I
     Dates: start: 20210726, end: 20210726
  13. METHOTREXATE [Suspect]
     Active Substance: METHOTREXATE
     Indication: Acute lymphocytic leukaemia
     Dosage: 15 MG DAY 2 INDUCTION I
     Route: 037
     Dates: start: 20210706, end: 20210706
  14. METHOTREXATE [Suspect]
     Active Substance: METHOTREXATE
     Dosage: 15 MG DAY 2 INDUCTION II
     Dates: start: 20210821
  15. CYCLOPHOSPHAMIDE [Suspect]
     Active Substance: CYCLOPHOSPHAMIDE
     Dosage: 495 MG DAY 1 INDUCTION II
     Dates: start: 20210819
  16. CYCLOPHOSPHAMIDE [Suspect]
     Active Substance: CYCLOPHOSPHAMIDE
     Dosage: 495 MG DAY 2 INDUCTION II
     Dates: start: 20210820
  17. CYCLOPHOSPHAMIDE [Suspect]
     Active Substance: CYCLOPHOSPHAMIDE
     Dosage: 495 MG DAY 3 INDUCTION II
     Dates: start: 20210821
  18. DEXAMETHASONE [Suspect]
     Active Substance: DEXAMETHASONE
     Dosage: 10 MG/12H ON DAY 1 AND DAY 2 OF CONSOLIDATION
     Route: 042
     Dates: start: 20210913
  19. SPIRIVA [Concomitant]
     Active Substance: TIOTROPIUM BROMIDE MONOHYDRATE
     Dosage: 1 DF, DAILY IN THE MORNING
     Route: 055
  20. INSULIN ASPART [Concomitant]
     Active Substance: INSULIN ASPART
     Dosage: ON MONDAY, TUESDAY, WEDNESDAY AND THURSDAY 16 IU AT 7 AM AND 18 IU AT 12 AM
     Route: 058
  21. INSULIN NOS [Concomitant]
     Active Substance: INSULIN NOS
     Dosage: UNK, AS NEEDED
  22. PANTOPRAZOLE SODIUM [Concomitant]
     Active Substance: PANTOPRAZOLE SODIUM
     Dosage: 1 DF, DAILY IN THE EVENING
     Route: 048
  23. CALCIUM PHOSPHATE, DIBASIC, ANHYDROUS\MAGNESIUM GLYCEROPHOSPHATE\PHOSP [Concomitant]
     Active Substance: CALCIUM PHOSPHATE, DIBASIC, ANHYDROUS\MAGNESIUM GLYCEROPHOSPHATE\PHOSPHORIC ACID\SODIUM PHOSPHATE, D
     Dosage: 15 DROP, 2X/DAY IN THE MORNING AND IN THE EVENING
     Route: 048
  24. MAGNESIUM CARBONATE [Concomitant]
     Active Substance: MAGNESIUM CARBONATE
     Dosage: 2 SACHET, 3X/DAY
     Route: 048
  25. POTASSIUM CHLORIDE [Concomitant]
     Active Substance: POTASSIUM CHLORIDE
     Dosage: 1 DF, 3X/DAY IN THE MORNING, AT NOON AND IN THE EVENING
     Route: 048
  26. ESIDREX [Concomitant]
     Active Substance: HYDROCHLOROTHIAZIDE
     Dosage: 1 DF, 1X/DAY IN THE MORNING
     Route: 048
  27. CANDESARTAN CILEXETIL [Concomitant]
     Active Substance: CANDESARTAN CILEXETIL
     Dosage: 2 DF, 1X/DAY IN THE MORNING
     Route: 048
  28. ATORVASTATIN CALCIUM [Concomitant]
     Active Substance: ATORVASTATIN CALCIUM
     Dosage: 1 DF, 1X/DAY IN THE EVENING
     Route: 048
  29. VALACYCLOVIR HYDROCHLORIDE [Concomitant]
     Active Substance: VALACYCLOVIR HYDROCHLORIDE
     Dosage: 1 DF, 2X/DAY IN THE MORNING AND IN THE EVENING
     Route: 048
  30. CHOLECALCIFEROL [Concomitant]
     Active Substance: CHOLECALCIFEROL
     Dosage: 50000 IU EVERY 7 DAYS IN THE MORNING FOR 6 WEEKS THEN EVERY MONTH FOR 6 MONTHS
     Route: 048
  31. KARDEGIC [Concomitant]
     Active Substance: ASPIRIN DL-LYSINE
     Dosage: 1 SACHET, 1X/DAY AT NOON
  32. METFORMIN HYDROCHLORIDE [Concomitant]
     Active Substance: METFORMIN HYDROCHLORIDE
     Dosage: 500 MG, 1X/DAY IN THE EVENING
     Route: 048
  33. TRANSIPEG [MACROGOL 3350;POTASSIUM CHLORIDE;SODIUM BICARBONATE;SODIUM [Concomitant]
     Dosage: 2 SACHET, 1X/DAY IN THE MORNING
     Route: 048
  34. MIANSERIN HYDROCHLORIDE [Concomitant]
     Active Substance: MIANSERIN HYDROCHLORIDE
     Dosage: 2 DF, 1X/DAY IN THE EVENING
     Route: 048
  35. OXAZEPAM [Concomitant]
     Active Substance: OXAZEPAM
     Dosage: 10 MG, 1X/DAY IN THE EVENING
  36. OMEPRAZOLE [Concomitant]
     Active Substance: OMEPRAZOLE
     Dosage: 20 MG, DAILY

REACTIONS (1)
  - Febrile neutropenia [Not Recovered/Not Resolved]

NARRATIVE: CASE EVENT DATE: 20210923
